FAERS Safety Report 4518117-X (Version None)
Quarter: 2004Q4

REPORT INFORMATION
  Report Type: 
  Country: None (occurrence: None)
  Receive Date: 20041130
  Receipt Date: 20041118
  Transmission Date: 20050328
  Serious: Yes (Disabling)
  Sender: FDA-Public Use
  Company Number: HQWYE622622NOV04

PATIENT
  Age: 37 Year
  Sex: Male

DRUGS (1)
  1. EFFEXOR XR [Suspect]
     Indication: ANGER
     Dosage: 37.5 MG 2X PER 1 DAY
     Route: 048
     Dates: start: 20000101

REACTIONS (2)
  - ANGER [None]
  - CONDITION AGGRAVATED [None]
